FAERS Safety Report 7484833-3 (Version None)
Quarter: 2011Q2

REPORT INFORMATION
  Report Type: 
  Country: None (occurrence: None)
  Receive Date: 20110517
  Receipt Date: 20100927
  Transmission Date: 20111010
  Serious: Yes (Other)
  Sender: FDA-Public Use
  Company Number: US-BAYER-201034233NA

PATIENT
  Age: 30 Year
  Sex: Female
  Weight: 72.562 kg

DRUGS (4)
  1. POTASSIUM CITRATE [Concomitant]
     Dosage: 1080 MG, UNK
     Dates: start: 20091124
  2. DROSPIRENONE AND ETHINYL ESTRADIOL [Suspect]
     Indication: ORAL CONTRACEPTION
     Dosage: UNK UNK, UNK
     Route: 048
     Dates: start: 20050101, end: 20060101
  3. YASMIN [Suspect]
     Indication: PRODUCT USED FOR UNKNOWN INDICATION
     Route: 048
  4. YAZ [Suspect]
     Indication: ORAL CONTRACEPTION
     Dosage: UNK UNK, UNK
     Route: 048
     Dates: start: 20050101, end: 20060101

REACTIONS (8)
  - ABDOMINAL PAIN UPPER [None]
  - CHOLECYSTITIS CHRONIC [None]
  - NEPHROLITHIASIS [None]
  - ABDOMINAL DISCOMFORT [None]
  - PAIN [None]
  - CHOLELITHIASIS [None]
  - NAUSEA [None]
  - FLANK PAIN [None]
